FAERS Safety Report 7475278-0 (Version None)
Quarter: 2011Q1

REPORT INFORMATION
  Report Type: 
  Country: None (occurrence: None)
  Receive Date: 20110302
  Receipt Date: 20100903
  Transmission Date: 20110831
  Serious: Yes (Other)
  Sender: FDA-Public Use
  Company Number: 163-21880-10062201

PATIENT
  Age: 69 Year
  Sex: Female

DRUGS (2)
  1. REVLIMID [Suspect]
  2. REVLIMID [Suspect]
     Indication: AMYLOIDOSIS
     Dosage: 15 MG, DAILY FOR 21 DAYS ON THEN 7 DAYS OFF, PO; 10 MG, PO
     Route: 048
     Dates: start: 20080715

REACTIONS (5)
  - LABORATORY TEST ABNORMAL [None]
  - RENAL IMPAIRMENT [None]
  - FLUSHING [None]
  - RENAL DISORDER [None]
  - PROTEINURIA [None]
